FAERS Safety Report 5391544-7 (Version None)
Quarter: 2007Q3

REPORT INFORMATION
  Report Type: 
  Country: None (occurrence: None)
  Receive Date: 20070719
  Receipt Date: 20070711
  Transmission Date: 20080115
  Serious: Yes (Other)
  Sender: FDA-Public Use
  Company Number: US-PFIZER INC-2007057309

PATIENT
  Sex: Male
  Weight: 120 kg

DRUGS (5)
  1. LIPITOR [Suspect]
     Indication: BLOOD CHOLESTEROL INCREASED
     Dosage: DAILY DOSE:20MG
     Dates: start: 20060901, end: 20070710
  2. TEGRETOL [Concomitant]
  3. CLONIDINE [Concomitant]
  4. RISPERDAL [Concomitant]
  5. ADVAIR DISKUS 100/50 [Concomitant]

REACTIONS (1)
  - WEIGHT DECREASED [None]
